FAERS Safety Report 11894627 (Version 2)
Quarter: 2016Q1

REPORT INFORMATION
  Report Type: Report from Study
  Country: CH (occurrence: CH)
  Receive Date: 20160107
  Receipt Date: 20160113
  Transmission Date: 20160526
  Serious: Yes (Other)
  Sender: FDA-Public Use
  Company Number: CH-BAYER-2016-002640

PATIENT
  Age: 52 Year
  Sex: Female
  Weight: 56.96 kg

DRUGS (2)
  1. MIRENA [Suspect]
     Active Substance: LEVONORGESTREL
     Indication: CONTRACEPTION
     Dosage: 20 MCG/24HR, CONT
     Route: 015
     Dates: start: 2015, end: 20151104
  2. MIRENA [Suspect]
     Active Substance: LEVONORGESTREL
     Indication: CONTRACEPTION
     Dosage: 20 MCG/24HR, CONT
     Route: 015
     Dates: start: 20151104, end: 20151223

REACTIONS (2)
  - Ovarian granulosa cell tumour [Recovered/Resolved]
  - Salpingo-oophorectomy [None]

NARRATIVE: CASE EVENT DATE: 2015
